FAERS Safety Report 10432289 (Version 2)
Quarter: 2015Q1

REPORT INFORMATION
  Report Type: Spontaneous
  Country: US (occurrence: None)
  Receive Date: 20140815
  Receipt Date: 20150129
  Transmission Date: 20150720
  Serious: No
  Sender: FDA-Public Use
  Company Number: A-NJ2014-102618

PATIENT
  Age: 66 Year
  Sex: Female

DRUGS (11)
  1. LASIX [Concomitant]
     Active Substance: FUROSEMIDE
  2. LIPITOR [Concomitant]
     Active Substance: ATORVASTATIN CALCIUM
  3. OPSUMIT [Suspect]
     Active Substance: MACITENTAN
     Indication: PULMONARY ARTERIAL HYPERTENSION
     Route: 048
     Dates: start: 20140215
  4. XARELTO [Concomitant]
     Active Substance: RIVAROXABAN
  5. SPIRONOLACTONE. [Concomitant]
     Active Substance: SPIRONOLACTONE
  6. SILDENAFIL (SILDENAFIL CITRATE) [Concomitant]
     Active Substance: SILDENAFIL CITRATE
  7. THYROXINE (LEVOTHYROXINE SODIUM) [Concomitant]
     Active Substance: LEVOTHYROXINE
  8. DILTIAZEM (DILTIAZEM HYDROCHLORIDE) [Concomitant]
  9. ALLOPURINOL (ALLOPURINOL SODIUM) [Concomitant]
  10. AMITRIPTYLINE (AMITRIPTYLINE PAMOATE) [Concomitant]
  11. METOPROLOL (METOPROLOL FUMARATE) [Concomitant]

REACTIONS (2)
  - Sinusitis [None]
  - Bronchitis [None]

NARRATIVE: CASE EVENT DATE: 201404
